FAERS Safety Report 12709270 (Version 1)
Quarter: 2016Q3

REPORT INFORMATION
  Report Type: Spontaneous
  Country: US (occurrence: None)
  Receive Date: 20160901
  Receipt Date: 20160901
  Transmission Date: 20161109
  Serious: Yes (Other)
  Sender: FDA-Public Use
  Company Number: None

PATIENT
  Age: 48 Year
  Sex: Female
  Weight: 82.56 kg

DRUGS (11)
  1. HUMIRA [Suspect]
     Active Substance: ADALIMUMAB
     Indication: ANKYLOSING SPONDYLITIS
     Route: 030
     Dates: start: 20141212, end: 20150311
  2. TRAMADOL ER [Concomitant]
     Active Substance: TRAMADOL HYDROCHLORIDE
  3. VITAMIN B12 [Concomitant]
     Active Substance: CYANOCOBALAMIN
  4. LINZESS [Concomitant]
     Active Substance: LINACLOTIDE
  5. LEVOTHYROXINE. [Concomitant]
     Active Substance: LEVOTHYROXINE
  6. ACETAZOLAMIDE. [Concomitant]
     Active Substance: ACETAZOLAMIDE
  7. GABAPENTIN. [Concomitant]
     Active Substance: GABAPENTIN
  8. DIFLUNISAL. [Concomitant]
     Active Substance: DIFLUNISAL
  9. VITAMIN D [Concomitant]
     Active Substance: CHOLECALCIFEROL
  10. ACETAMINOPHEN / COD #4 [Concomitant]
  11. OMEPRAZOLE. [Concomitant]
     Active Substance: OMEPRAZOLE

REACTIONS (2)
  - Therapy non-responder [None]
  - Meningioma [None]

NARRATIVE: CASE EVENT DATE: 20141212
